FAERS Safety Report 7776253-9 (Version None)
Quarter: 2011Q3

REPORT INFORMATION
  Report Type: 
  Country: None (occurrence: None)
  Receive Date: 20110921
  Receipt Date: 20110906
  Transmission Date: 20111222
  Serious: Yes (Other)
  Sender: FDA-Public Use
  Company Number: JP-2011-11457

PATIENT
  Age: 70 Year
  Sex: Male

DRUGS (2)
  1. ASPIRIN [Concomitant]
  2. CILOSTAZOL [Suspect]
     Indication: ARTERIAL OCCLUSIVE DISEASE
     Dosage: 50 MG MILLIGRAM(S), BID, ORAL
     Route: 048
     Dates: start: 20110901

REACTIONS (4)
  - LEFT VENTRICULAR HYPERTROPHY [None]
  - OXYGEN CONSUMPTION DECREASED [None]
  - TACHYCARDIA [None]
  - ATRIAL FIBRILLATION [None]
